FAERS Safety Report 6523343-4 (Version None)
Quarter: 2009Q4

REPORT INFORMATION
  Report Type: 
  Country: None (occurrence: None)
  Receive Date: 20091231
  Receipt Date: 20091222
  Transmission Date: 20100525
  Serious: Yes (Hospitalization)
  Sender: FDA-Public Use
  Company Number: JP-ROCHE-673352

PATIENT
  Sex: Female
  Weight: 44 kg

DRUGS (4)
  1. PEG-INTERFERON ALFA 2A (RO 25-8310) [Suspect]
     Indication: HEPATITIS C
     Route: 058
     Dates: start: 20091021
  2. RIBAVIRIN [Suspect]
     Indication: HEPATITIS C
     Route: 048
     Dates: start: 20091021
  3. TMC435 [Suspect]
     Indication: HEPATITIS C
     Route: 048
     Dates: start: 20091021
  4. ANTEBATE [Concomitant]
     Dosage: ANTEBATE:OINTMENT, ROUTE: SYSTEMIC EMROCATION.
     Route: 050
     Dates: start: 20091009

REACTIONS (2)
  - STOMATITIS [None]
  - VULVAR EROSION [None]
